FAERS Safety Report 6246259-X (Version None)
Quarter: 2009Q2

REPORT INFORMATION
  Report Type: 
  Country: None (occurrence: None)
  Receive Date: 20090626
  Receipt Date: 20090618
  Transmission Date: 20091009
  Serious: Yes (Other)
  Sender: FDA-Public Use
  Company Number: JP-B.I. PHARMACEUTICALS,INC./RIDGEFIELD-2009-DE-04290GD

PATIENT

DRUGS (1)
  1. PRAMIPEXOLE DIHYDROCHLORIDE [Suspect]

REACTIONS (3)
  - AORTIC VALVE INCOMPETENCE [None]
  - MITRAL VALVE INCOMPETENCE [None]
  - TRICUSPID VALVE INCOMPETENCE [None]
